FAERS Safety Report 5691762-4 (Version None)
Quarter: 2008Q2

REPORT INFORMATION
  Report Type: 
  Country: None (occurrence: None)
  Receive Date: 20080401
  Receipt Date: 20080401
  Transmission Date: 20081010
  Serious: Yes (Other)
  Sender: FDA-Public Use
  Company Number: None

PATIENT
  Age: 51 Year
  Sex: Male
  Weight: 91.6266 kg

DRUGS (1)
  1. SINGULAIR [Suspect]
     Indication: ALLERGY PROPHYLAXIS
     Dosage: 10MG?  1 PER DAY  PO
     Route: 048
     Dates: start: 20070320, end: 20070422

REACTIONS (11)
  - AGORAPHOBIA [None]
  - ANOSMIA [None]
  - ANXIETY [None]
  - DEPRESSION [None]
  - INSOMNIA [None]
  - LETHARGY [None]
  - MENTAL DISORDER [None]
  - PALPITATIONS [None]
  - PANIC ATTACK [None]
  - POLYP [None]
  - SUICIDAL IDEATION [None]
